FAERS Safety Report 4712869-1 (Version None)
Quarter: 2005Q3

REPORT INFORMATION
  Report Type: 
  Country: None (occurrence: None)
  Receive Date: 20050711
  Receipt Date: 20050625
  Transmission Date: 20060218
  Serious: Yes (Hospitalization)
  Sender: FDA-Public Use
  Company Number: CA-2005-005036

PATIENT
  Age: 43 Year
  Sex: Female

DRUGS (8)
  1. BETASERON [Suspect]
     Indication: RELAPSING-REMITTING MULTIPLE SCLEROSIS
     Dosage: 8 MIU, EVERY 2D, SUBCUTANEOUS
     Route: 058
     Dates: start: 20011205
  2. NEURONTIN [Concomitant]
  3. BACLOFEN [Concomitant]
  4. ZANAFLEX [Concomitant]
  5. AMANTADINE HCL [Concomitant]
  6. DETROL [Concomitant]
  7. ADVAIR (FLUTICAOSNE PROPIONATE, SALMETEROL XINAFOATE) [Concomitant]
  8. VENTOLIN [Concomitant]

REACTIONS (7)
  - ABDOMINAL HERNIA [None]
  - INCISIONAL HERNIA [None]
  - MULTIPLE SCLEROSIS RELAPSE [None]
  - PETECHIAE [None]
  - POST PROCEDURAL COMPLICATION [None]
  - SCAR [None]
  - VASCULAR FRAGILITY [None]
